FAERS Safety Report 11199144 (Version 1)
Quarter: 2015Q2

REPORT INFORMATION
  Report Type: Spontaneous
  Country: US (occurrence: US)
  Receive Date: 20150618
  Receipt Date: 20150618
  Transmission Date: 20150821
  Serious: No
  Sender: FDA-Public Use
  Company Number: US-TEVA-541997USA

PATIENT

DRUGS (4)
  1. PHENYTOIN. [Suspect]
     Active Substance: PHENYTOIN
     Route: 065
  2. LAMOTRIGINE. [Suspect]
     Active Substance: LAMOTRIGINE
     Route: 065
  3. KEPPRA [Suspect]
     Active Substance: LEVETIRACETAM
     Route: 065
  4. CLOBAZAM [Suspect]
     Active Substance: CLOBAZAM
     Route: 065

REACTIONS (1)
  - Fatigue [Unknown]
